FAERS Safety Report 24866859 (Version 1)
Quarter: 2025Q1

REPORT INFORMATION
  Report Type: Report from Study
  Country: US (occurrence: US)
  Receive Date: 20250121
  Receipt Date: 20250121
  Transmission Date: 20250408
  Serious: Yes (Other)
  Sender: ROCHE
  Company Number: US-ROCHE-10000183111

PATIENT
  Age: 53 Year
  Sex: Female

DRUGS (22)
  1. XOLAIR [Suspect]
     Active Substance: OMALIZUMAB
     Indication: Idiopathic urticaria
     Dosage: SITE OF INJECTION: RIGHT, LEFT ARM 150 MG/ML
     Route: 058
  2. XOLAIR [Suspect]
     Active Substance: OMALIZUMAB
  3. XOLAIR [Suspect]
     Active Substance: OMALIZUMAB
     Indication: Idiopathic urticaria
     Route: 058
  4. ACETAMINOPHEN (TYLENOL EXTRA STRENGTH) 500 MG TABLET [Concomitant]
     Dosage: STRENGTH-500 MG
     Route: 048
     Dates: start: 20230724
  5. ALBUTEROL HFA 90 MCG/ACT INHALER [Concomitant]
     Dosage: STRENGTH- 90 MCG/ACT INHALER
     Route: 055
  6. BUSPIRON BUSPAR 30 MG TABLET [Concomitant]
     Route: 048
  7. CETRIZINE (ZYRTEC) 10 MG TABLET [Concomitant]
     Dosage: STRENGTH-10MG
     Route: 048
     Dates: start: 20230914
  8. COLECALCIFEROL 417 MCG/ML LIQUID [Concomitant]
     Route: 048
  9. CYCLOBENZAPRIN (FLEXERIL) 10 MG TABLET [Concomitant]
     Dosage: STRENGTH_ 10 MG
     Route: 048
     Dates: start: 20230914
  10. IBUPROFEN [Concomitant]
     Active Substance: IBUPROFEN
     Route: 048
     Dates: start: 20230724
  11. LISDEXAMFETAMINE (VYVANASE) 20 MG CAPSULE [Concomitant]
     Dosage: STRENGTH-20 MG
     Route: 048
  12. MELATONIN 10 MG TABLET [Concomitant]
     Route: 048
  13. OXYCODONE (ROXICODONE) IMMIDIATE RELEASE TABLET [Concomitant]
     Dosage: STRENGTH-5 MG
     Route: 048
     Dates: start: 20230724
  14. TAMOXIFEN (NOLVADEX) 20 MG CHEMO TABLET [Concomitant]
     Route: 048
  15. ZYRTEC [Concomitant]
     Active Substance: CETIRIZINE HYDROCHLORIDE
     Dates: start: 20230914
  16. MIRAPEX 1.5 MG TABLET [Concomitant]
     Dosage: STRENGTH-1.5 MG
     Route: 048
  17. ZOFRAN [Concomitant]
     Active Substance: ONDANSETRON HYDROCHLORIDE
     Dosage: STRENGTH-4MG
     Route: 048
  18. STRATTERA 40 MG CAPSULE [Concomitant]
     Dosage: STRENGTH-40 MG
     Route: 048
     Dates: start: 20190110
  19. FLUOXETINE 40 MG CAPSULE [Concomitant]
     Dosage: STRENGTH-40 MG
     Route: 048
     Dates: start: 20190110
  20. DOXEPIN 10 MG CAPSULE [Concomitant]
     Indication: Insomnia
     Route: 048
     Dates: start: 20190110
  21. EPINEPHRINE [Concomitant]
     Active Substance: EPINEPHRINE
     Indication: Anaphylactic reaction
     Route: 030
     Dates: start: 20240129, end: 20240129
  22. ADDERALL [Concomitant]
     Active Substance: AMPHETAMINE ASPARTATE\AMPHETAMINE SULFATE\DEXTROAMPHETAMINE SACCHARATE\DEXTROAMPHETAMINE SULFATE
     Route: 048

REACTIONS (8)
  - Anaphylactic reaction [Unknown]
  - Urticaria [Unknown]
  - Dyspnoea [Unknown]
  - Pharyngeal swelling [Unknown]
  - Anxiety [Unknown]
  - Confusional state [Unknown]
  - Pruritus [Unknown]
  - Drug ineffective [Unknown]

NARRATIVE: CASE EVENT DATE: 20240323
